FAERS Safety Report 13916495 (Version 1)
Quarter: 2017Q3

REPORT INFORMATION
  Report Type: Spontaneous
  Country: US (occurrence: US)
  Receive Date: 20170829
  Receipt Date: 20170829
  Transmission Date: 20171127
  Serious: No
  Sender: FDA-Public Use
  Company Number: US-MYLANLABS-2016M1058772

PATIENT
  Sex: Male

DRUGS (1)
  1. TEMAZEPAM CAPSULES USP [Suspect]
     Active Substance: TEMAZEPAM
     Indication: INSOMNIA
     Dosage: 15-30 MG, QD
     Route: 048
     Dates: start: 201511

REACTIONS (1)
  - Drug effect decreased [Not Recovered/Not Resolved]

NARRATIVE: CASE EVENT DATE: 2016
